FAERS Safety Report 9539911 (Version 2)
Quarter: 2013Q3

REPORT INFORMATION
  Report Type: Spontaneous
  Country: US (occurrence: US)
  Receive Date: 20130920
  Receipt Date: 20130920
  Transmission Date: 20140515
  Serious: Yes (Death)
  Sender: FDA-Public Use
  Company Number: US-NAPPMUNDI-USA-2010-0058330

PATIENT
  Age: 15 Year
  Sex: Male
  Weight: 67 kg

DRUGS (4)
  1. HYDROMORPHONE HCL (SIMILAR TO 19-892) [Suspect]
     Indication: DRUG ABUSE
  2. OXYCODONE HYDROCHLORIDE (SIMILAR TO NDA 22-272) [Suspect]
     Indication: DRUG ABUSE
  3. XANAX [Suspect]
     Indication: DRUG ABUSE
  4. COCAINE [Suspect]
     Indication: SUBSTANCE ABUSE

REACTIONS (2)
  - Accidental overdose [Fatal]
  - Substance abuse [Fatal]
